FAERS Safety Report 7053552-X (Version None)
Quarter: 2010Q4

REPORT INFORMATION
  Report Type: 
  Country: None (occurrence: None)
  Receive Date: 20101015
  Receipt Date: 20101005
  Transmission Date: 20110411
  Serious: Yes (Life-Threatening, Hospitalization)
  Sender: FDA-Public Use
  Company Number: WAES 1010USA00595

PATIENT
  Age: 64 Year
  Sex: Female

DRUGS (8)
  1. FOSAMAX [Suspect]
     Dosage: 70 MG/WKY, PO
     Route: 048
  2. PRINIVIL [Suspect]
     Dosage: 10 MG/DAILY, PO
     Route: 048
  3. AVANDAMET [Suspect]
  4. METOPROLOL [Suspect]
     Dosage: 25 MG/DAILY, PO
     Route: 048
  5. STUDY DRUG (UNSPECIFIED) [Suspect]
     Dosage: 25 MG/DAILY, PO
     Route: 048
  6. TRIAMTERENE/HYDROCHLOROTHIAZIDE [Suspect]
     Dosage: 1 TAB DAILY
  7. ZOCOR [Suspect]
     Dosage: 20 MG/DAILY, PO
     Route: 048
  8. CALCIUM (+) VITAMIN D [Concomitant]

REACTIONS (1)
  - PULMONARY EMBOLISM [None]
